FAERS Safety Report 7353760-4 (Version None)
Quarter: 2011Q1

REPORT INFORMATION
  Report Type: 
  Country: None (occurrence: None)
  Receive Date: 20110315
  Receipt Date: 20110308
  Transmission Date: 20110831
  Serious: Yes (Other)
  Sender: FDA-Public Use
  Company Number: US-ELI_LILLY_AND_COMPANY-US201103003709

PATIENT
  Sex: Female

DRUGS (2)
  1. EVISTA [Suspect]
     Dosage: 60 MG, UNK
  2. CELEBREX [Concomitant]
     Dosage: 200 MG, UNK

REACTIONS (1)
  - ACUTE MYOCARDIAL INFARCTION [None]
